FAERS Safety Report 5722676-9 (Version None)
Quarter: 2008Q2

REPORT INFORMATION
  Report Type: 
  Country: None (occurrence: None)
  Receive Date: 20080429
  Receipt Date: 20070709
  Transmission Date: 20081010
  Serious: No
  Sender: FDA-Public Use
  Company Number: US-ASTRAZENECA-2007UW15965

PATIENT
  Age: 72 Year
  Sex: Female
  Weight: 68 kg

DRUGS (10)
  1. NEXIUM [Suspect]
     Indication: FLATULENCE
     Route: 048
     Dates: start: 20070201
  2. NEXIUM [Suspect]
     Indication: ERUCTATION
     Route: 048
     Dates: start: 20070201
  3. COREG [Concomitant]
  4. FUROSEMIDE [Concomitant]
  5. DIGOXIN [Concomitant]
  6. WARFARIN SODIUM [Concomitant]
  7. LISINOPRIL [Concomitant]
  8. ASPIRIN [Concomitant]
  9. SPIRIVA [Concomitant]
  10. ADVAIR HFA [Concomitant]

REACTIONS (3)
  - DRY SKIN [None]
  - PRURITUS [None]
  - RASH GENERALISED [None]
